FAERS Safety Report 9511033 (Version 1)
Quarter: 2013Q3

REPORT INFORMATION
  Report Type: Spontaneous
  Country: US (occurrence: None)
  Receive Date: 20130905
  Receipt Date: 20130905
  Transmission Date: 20140515
  Serious: Yes (Other)
  Sender: FDA-Public Use
  Company Number: KAD201308-001102

PATIENT
  Age: 71 Year
  Sex: Male

DRUGS (3)
  1. RIBAVIRIN [Suspect]
     Indication: HEPATITIS C
  2. INTERFERON ALFACON-1 [Suspect]
     Indication: HEPATITIS C
  3. PEGYLATED INTERFERON ALFA [Suspect]
     Indication: HEPATITIS C

REACTIONS (5)
  - Treatment failure [None]
  - Parkinson^s disease [None]
  - Tremor [None]
  - Bradykinesia [None]
  - Muscle rigidity [None]
